FAERS Safety Report 11186257 (Version 1)
Quarter: 2015Q2

REPORT INFORMATION
  Report Type: Report from Study
  Country: DE (occurrence: AU)
  Receive Date: 20150612
  Receipt Date: 20150612
  Transmission Date: 20150821
  Serious: Yes (Death)
  Sender: FDA-Public Use
  Company Number: DE-ACTELION-A-NJ2015-119473

PATIENT
  Age: 72 Year
  Sex: Female

DRUGS (1)
  1. VENTAVIS [Suspect]
     Active Substance: ILOPROST
     Indication: PULMONARY ARTERIAL HYPERTENSION
     Dosage: UNK, 4-6 TIMES DAILY
     Route: 055
     Dates: start: 20120719, end: 20130701

REACTIONS (2)
  - Product use issue [Fatal]
  - Death [Fatal]

NARRATIVE: CASE EVENT DATE: 201208
